FAERS Safety Report 14417754 (Version 1)
Quarter: 2018Q1

REPORT INFORMATION
  Report Type: Report from Study
  Country: US (occurrence: BR)
  Receive Date: 20180122
  Receipt Date: 20180122
  Transmission Date: 20180509
  Serious: Yes (Death, Other)
  Sender: FDA-Public Use
  Company Number: US-SUNOVION-2018SUN000163

PATIENT
  Sex: Female
  Weight: 59 kg

DRUGS (1)
  1. INDACATEROL AND GLYCOPYRROLATE [Suspect]
     Active Substance: GLYCOPYRROLATE\INDACATEROL MALEATE
     Indication: LUNG DISORDER
     Dosage: 1 DF (110/50 UG), QD
     Route: 055

REACTIONS (3)
  - Mitral valve incompetence [Fatal]
  - Arteriosclerosis [Fatal]
  - Product use in unapproved indication [Unknown]
